FAERS Safety Report 10510458 (Version 4)
Quarter: 2015Q2

REPORT INFORMATION
  Report Type: Spontaneous
  Country: US (occurrence: US)
  Receive Date: 20141010
  Receipt Date: 20150525
  Transmission Date: 20150821
  Serious: Yes (Hospitalization)
  Sender: FDA-Public Use
  Company Number: US-JNJFOC-20141005206

PATIENT
  Sex: Male

DRUGS (5)
  1. CODEINE [Concomitant]
     Active Substance: CODEINE
     Route: 065
  2. METOPROLOL [Concomitant]
     Active Substance: METOPROLOL
     Indication: BLOOD PRESSURE INCREASED
     Route: 065
     Dates: start: 201006
  3. PANADOL [Concomitant]
     Active Substance: ACETAMINOPHEN
     Route: 065
  4. SIMVASTATIN. [Concomitant]
     Active Substance: SIMVASTATIN
     Indication: BLOOD CHOLESTEROL INCREASED
     Route: 065
     Dates: start: 201008
  5. ULTRAM [Suspect]
     Active Substance: TRAMADOL HYDROCHLORIDE
     Indication: PAIN
     Dosage: 200-400 MG PER DAY
     Route: 048
     Dates: start: 2001, end: 201409

REACTIONS (5)
  - Pulmonary hypertension [Unknown]
  - Pulmonary embolism [Recovering/Resolving]
  - Hypersomnia [Not Recovered/Not Resolved]
  - Fatigue [Not Recovered/Not Resolved]
  - Exercise lack of [Not Recovered/Not Resolved]

NARRATIVE: CASE EVENT DATE: 2011
